FAERS Safety Report 10928802 (Version 2)
Quarter: 2015Q2

REPORT INFORMATION
  Report Type: Spontaneous
  Country: US (occurrence: US)
  Receive Date: 20150319
  Receipt Date: 20150524
  Transmission Date: 20150821
  Serious: No
  Sender: FDA-Public Use
  Company Number: US-JNJFOC-20140925428

PATIENT
  Age: 13 Year
  Sex: Female

DRUGS (1)
  1. CONCERTA [Suspect]
     Active Substance: METHYLPHENIDATE HYDROCHLORIDE
     Indication: PRODUCT USED FOR UNKNOWN INDICATION
     Route: 048
     Dates: start: 201409

REACTIONS (7)
  - Feeling abnormal [Unknown]
  - Fatigue [Unknown]
  - Pain [Unknown]
  - Pain of skin [Unknown]
  - Mood swings [Unknown]
  - Restlessness [Unknown]
  - Sleep talking [Unknown]

NARRATIVE: CASE EVENT DATE: 201409
